FAERS Safety Report 9761482 (Version 1)
Quarter: 2013Q4

REPORT INFORMATION
  Report Type: Spontaneous
  Country: US (occurrence: US)
  Receive Date: 20131216
  Receipt Date: 20131216
  Transmission Date: 20140711
  Serious: No
  Sender: FDA-Public Use
  Company Number: US-BIOGENIDEC-2013BI107627

PATIENT
  Age: 17 Year
  Sex: Female

DRUGS (7)
  1. TECFIDERA [Suspect]
     Indication: MULTIPLE SCLEROSIS
     Route: 048
     Dates: start: 20130927
  2. TECFIDERA [Suspect]
     Indication: MULTIPLE SCLEROSIS
     Route: 048
     Dates: end: 20131021
  3. KANIVA (NOS) [Concomitant]
  4. PROPRANOLOL [Concomitant]
  5. TYLENOL [Concomitant]
  6. VITAMIN D [Concomitant]
  7. VENLAFAXINE [Concomitant]

REACTIONS (3)
  - Off label use [Recovered/Resolved]
  - Nausea [Recovered/Resolved]
  - Vomiting [Recovered/Resolved]
